FAERS Safety Report 5072486-3 (Version None)
Quarter: 2006Q3

REPORT INFORMATION
  Report Type: 
  Country: None (occurrence: None)
  Receive Date: 20060801
  Receipt Date: 20060717
  Transmission Date: 20061208
  Serious: Yes (Other)
  Sender: FDA-Public Use
  Company Number: US200605004949

PATIENT
  Age: 60 Year
  Sex: Female

DRUGS (4)
  1. HUMALOG MIX 75/25 [Suspect]
     Indication: DIABETES MELLITUS
     Dosage: SEE IMAGE
     Dates: start: 20060301, end: 20060301
  2. HUMALOG MIX 75/25 [Suspect]
     Indication: DIABETES MELLITUS
     Dosage: SEE IMAGE
     Dates: start: 19990101
  3. HUMALOG MIX 75/25 [Suspect]
     Indication: DIABETES MELLITUS
     Dosage: 60 U, 2/D
     Dates: start: 19990101
  4. HUMALOG MIX 25L / 75NPL PEN [Concomitant]

REACTIONS (6)
  - ATRIAL FIBRILLATION [None]
  - EYE DISORDER [None]
  - PHARMACEUTICAL PRODUCT COMPLAINT [None]
  - RETINAL VASCULAR THROMBOSIS [None]
  - THROMBOSIS [None]
  - WRONG DRUG ADMINISTERED [None]
